FAERS Safety Report 21133091 (Version 3)
Quarter: 2022Q4

REPORT INFORMATION
  Report Type: Spontaneous
  Country: DE (occurrence: None)
  Receive Date: 20220726
  Receipt Date: 20221021
  Transmission Date: 20230113
  Serious: Yes (Other)
  Sender: FDA-Public Use
  Company Number: DE-ROCHE-3147389

PATIENT
  Sex: Female
  Weight: 66 kg

DRUGS (7)
  1. OCREVUS [Suspect]
     Active Substance: OCRELIZUMAB
     Indication: Multiple sclerosis
     Route: 065
     Dates: start: 20201201, end: 20211130
  2. COMIRNATY [Concomitant]
     Active Substance: TOZINAMERAN
     Indication: COVID-19 immunisation
     Dates: start: 20210420, end: 20210420
  3. COMIRNATY [Concomitant]
     Active Substance: TOZINAMERAN
     Dates: start: 20210601, end: 20210601
  4. COMIRNATY [Concomitant]
     Active Substance: TOZINAMERAN
     Dates: start: 20211024, end: 20211024
  5. INFLUSPLIT TETRA [Concomitant]
     Active Substance: INFLUENZA VIRUS VACCINE
     Indication: Influenza immunisation
  6. COVID 19 VACCINE (UNK INGREDIENTS) [Concomitant]
  7. PAXLOVID [Concomitant]
     Active Substance: NIRMATRELVIR\RITONAVIR
     Dates: start: 202204

REACTIONS (8)
  - Diarrhoea [Not Recovered/Not Resolved]
  - Chronic sinusitis [Not Recovered/Not Resolved]
  - COVID-19 [Unknown]
  - Lung disorder [Not Recovered/Not Resolved]
  - SARS-CoV-2 antibody test negative [Unknown]
  - Colitis [Recovered/Resolved]
  - Pneumonia [Not Recovered/Not Resolved]
  - Bronchitis [Not Recovered/Not Resolved]

NARRATIVE: CASE EVENT DATE: 20211201
